FAERS Safety Report 16087394 (Version 1)
Quarter: 2019Q1

REPORT INFORMATION
  Report Type: Spontaneous
  Country: DE (occurrence: DE)
  Receive Date: 20190319
  Receipt Date: 20190319
  Transmission Date: 20190418
  Serious: Yes (Other)
  Sender: FDA-Public Use
  Company Number: DE-ROCHE-2285105

PATIENT
  Sex: Male

DRUGS (3)
  1. METHYLPREDNISOLONE. [Suspect]
     Active Substance: METHYLPREDNISOLONE
     Indication: MYELITIS TRANSVERSE
     Dosage: UNK
     Route: 042
     Dates: start: 201410
  2. METHYLPREDNISOLONE. [Suspect]
     Active Substance: METHYLPREDNISOLONE
     Route: 042
     Dates: start: 201411
  3. RITUXIMAB. [Suspect]
     Active Substance: RITUXIMAB
     Indication: MYELITIS TRANSVERSE
     Route: 041
     Dates: start: 2015

REACTIONS (3)
  - Therapeutic response decreased [Unknown]
  - Disease recurrence [Unknown]
  - Myelitis transverse [Unknown]

NARRATIVE: CASE EVENT DATE: 201411
